FAERS Safety Report 19498510 (Version 11)
Quarter: 2022Q1

REPORT INFORMATION
  Report Type: Report from Study
  Country: US (occurrence: US)
  Receive Date: 20210706
  Receipt Date: 20220304
  Transmission Date: 20220424
  Serious: Yes (Hospitalization, Other)
  Sender: FDA-Public Use
  Company Number: US-NOVARTISPH-NVSC2021US138765

PATIENT
  Sex: Male

DRUGS (4)
  1. ENTRESTO [Suspect]
     Active Substance: SACUBITRIL\VALSARTAN
     Indication: Product used for unknown indication
     Dosage: 1 DOSAGE FORM, BID (24/26 MG)
     Route: 048
     Dates: start: 20210101
  2. SPIRONOLACTONE [Suspect]
     Active Substance: SPIRONOLACTONE
     Indication: Product used for unknown indication
     Dosage: UNK
     Route: 065
  3. METOPROLOL [Concomitant]
     Active Substance: METOPROLOL
     Indication: Product used for unknown indication
     Dosage: UNK
     Route: 065
  4. ASPIRIN [Concomitant]
     Active Substance: ASPIRIN
     Indication: Product used for unknown indication
     Dosage: UNK
     Route: 065

REACTIONS (15)
  - Pulmonary oedema [Recovered/Resolved]
  - Procedural haemorrhage [Unknown]
  - Clostridium difficile colitis [Recovered/Resolved]
  - Procedural complication [Unknown]
  - Dehydration [Recovered/Resolved]
  - Overdose [Unknown]
  - Haemorrhage [Unknown]
  - Arrhythmia [Unknown]
  - Asthenia [Recovering/Resolving]
  - Malaise [Unknown]
  - Depression [Recovering/Resolving]
  - Dyspnoea [Recovering/Resolving]
  - Weight decreased [Unknown]
  - Weight increased [Recovering/Resolving]
  - Inappropriate schedule of product administration [Unknown]

NARRATIVE: CASE EVENT DATE: 20210101
